FAERS Safety Report 12722645 (Version 1)
Quarter: 2016Q3

REPORT INFORMATION
  Report Type: Other
  Country: US (occurrence: US)
  Receive Date: 20160907
  Receipt Date: 20160907
  Transmission Date: 20161109
  Serious: No
  Sender: FDA-Public Use
  Company Number: US-COL_21724_2016

PATIENT
  Age: 74 Year
  Sex: Female

DRUGS (1)
  1. COLGATE TOTAL DAILY REPAIR [Suspect]
     Active Substance: SODIUM FLUORIDE\TRICLOSAN
     Indication: PRODUCT USED FOR UNKNOWN INDICATION
     Dosage: COVERED THE WHOLE HEAD OF HER TOOTHBRUSH WITH THE TOOTHPASTE/ONE TIME/
     Route: 048
     Dates: start: 201512, end: 201512

REACTIONS (2)
  - Oral discomfort [Recovered/Resolved]
  - Product taste abnormal [Unknown]

NARRATIVE: CASE EVENT DATE: 201512
